FAERS Safety Report 11480963 (Version 1)
Quarter: 2015Q3

REPORT INFORMATION
  Report Type: Spontaneous
  Country: US (occurrence: US)
  Receive Date: 20150909
  Receipt Date: 20150909
  Transmission Date: 20151125
  Serious: Yes (Other)
  Sender: FDA-Public Use
  Company Number: US-PFIZER INC-2015295749

PATIENT
  Age: 73 Year
  Sex: Male
  Weight: 81.18 kg

DRUGS (1)
  1. GLIPIZIDE. [Suspect]
     Active Substance: GLIPIZIDE
     Dosage: 5 MG, 1X/DAY
     Dates: end: 20150630

REACTIONS (3)
  - Renal impairment [Unknown]
  - Accidental exposure to product [Unknown]
  - Hypoglycaemia [Unknown]
